FAERS Safety Report 5804136-X (Version None)
Quarter: 2008Q3

REPORT INFORMATION
  Report Type: 
  Country: None (occurrence: None)
  Receive Date: 20080702
  Receipt Date: 20070518
  Transmission Date: 20090109
  Serious: Yes (Other)
  Sender: FDA-Public Use
  Company Number: HQWYE289021MAY07

PATIENT
  Age: 31 Year
  Sex: Male
  Weight: 76.27 kg

DRUGS (1)
  1. IBUPROFEN TABLETS [Suspect]
     Indication: ARTHRALGIA
     Dosage: 2 TABLETS AS NEEDED, ORAL
     Route: 048
     Dates: start: 20061001

REACTIONS (1)
  - GINGIVAL BLEEDING [None]
